FAERS Safety Report 4656198-3 (Version None)
Quarter: 2005Q2

REPORT INFORMATION
  Report Type: 
  Country: None (occurrence: None)
  Receive Date: 20050509
  Receipt Date: 20050208
  Transmission Date: 20051028
  Serious: No
  Sender: FDA-Public Use
  Company Number: US-GLAXOSMITHKLINE-A0544539A

PATIENT
  Age: 76 Year
  Sex: Female

DRUGS (11)
  1. AVANDAMET [Suspect]
     Route: 048
     Dates: start: 20041001
  2. GLIPIZIDE [Concomitant]
  3. SPIRONOLACTONE [Concomitant]
  4. LASIX [Concomitant]
  5. MULTIVITAMIN [Concomitant]
  6. VITAMIN B COMPLEX CAP [Concomitant]
  7. CALCIUM GLUCONATE [Concomitant]
  8. LIPITOR [Concomitant]
  9. LEVOXYL [Concomitant]
  10. METOPROLOL [Concomitant]
  11. ASPIRIN [Concomitant]

REACTIONS (2)
  - DIARRHOEA [None]
  - OEDEMA PERIPHERAL [None]
